FAERS Safety Report 18881425 (Version 1)
Quarter: 2021Q1

REPORT INFORMATION
  Report Type: Spontaneous
  Country: US (occurrence: US)
  Receive Date: 20210212
  Receipt Date: 20210212
  Transmission Date: 20210420
  Serious: No
  Sender: FDA-Public Use
  Company Number: US-ASTRAZENECA-2021A010363

PATIENT
  Sex: Female

DRUGS (1)
  1. IMFINZI [Suspect]
     Active Substance: DURVALUMAB
     Indication: NON-SMALL CELL LUNG CANCER STAGE III
     Dosage: UNKNOWN DOSE, EVERY 3 WEEKS
     Route: 042
     Dates: start: 2020

REACTIONS (5)
  - Pain of skin [Unknown]
  - Pain [Unknown]
  - Breast pain [Unknown]
  - Back pain [Unknown]
  - Musculoskeletal chest pain [Unknown]
